FAERS Safety Report 5563625-6 (Version None)
Quarter: 2007Q4

REPORT INFORMATION
  Report Type: 
  Country: None (occurrence: None)
  Receive Date: 20071217
  Receipt Date: 20071203
  Transmission Date: 20080405
  Serious: Yes (Hospitalization)
  Sender: FDA-Public Use
  Company Number: DE-ELI_LILLY_AND_COMPANY-DE200708001222

PATIENT
  Sex: Male
  Weight: 80 kg

DRUGS (1)
  1. ALIMTA [Suspect]
     Indication: LUNG SQUAMOUS CELL CARCINOMA STAGE UNSPECIFIED
     Dosage: 500 MG/M2, UNKNOWN
     Route: 042
     Dates: start: 20070717

REACTIONS (1)
  - PNEUMONIA PRIMARY ATYPICAL [None]
